FAERS Safety Report 8604166-9 (Version None)
Quarter: 2012Q3

REPORT INFORMATION
  Report Type: 
  Country: None (occurrence: None)
  Receive Date: 20120806
  Receipt Date: 20120725
  Transmission Date: 20120928
  Serious: Yes (Other)
  Sender: FDA-Public Use
  Company Number: 2012MA009216

PATIENT
  Age: 56 Year
  Sex: Female

DRUGS (1)
  1. FEVERALL [Suspect]
     Dosage: 75 GM

REACTIONS (9)
  - HYPOREFLEXIA [None]
  - PROTHROMBIN TIME PROLONGED [None]
  - BLOOD LACTIC ACID INCREASED [None]
  - BLOOD PH DECREASED [None]
  - TOXICITY TO VARIOUS AGENTS [None]
  - LOSS OF CONSCIOUSNESS [None]
  - ASPARTATE AMINOTRANSFERASE INCREASED [None]
  - BLOOD BICARBONATE INCREASED [None]
  - ANION GAP INCREASED [None]
